FAERS Safety Report 6013237 (Version 23)
Quarter: 2013Q2

REPORT INFORMATION
  Report Type: Spontaneous
  Country: US (occurrence: US)
  Receive Date: 20060328
  Receipt Date: 20130430
  Transmission Date: 20140414
  Serious: Yes (Other)
  Sender: FDA-Public Use
  Company Number: PHEH2006US03610

PATIENT
  Age: 67 Year
  Sex: Female
  Weight: 79.37 kg

DRUGS (42)
  1. AREDIA [Suspect]
     Dosage: 30 MG, QMO
     Dates: start: 20030718
  2. ZOMETA [Suspect]
     Indication: METASTASES TO BONE
     Dosage: 4 MG QMO
     Dates: start: 20030718, end: 20051201
  3. ZOMETA [Suspect]
     Dosage: 2 MG EVERY 3 WEEKS
     Dates: start: 20060526
  4. FEMARA [Concomitant]
     Indication: BREAST CANCER
     Dosage: 2.5 MG, QD
     Route: 048
  5. FASLODEX [Concomitant]
  6. XELODA [Concomitant]
     Indication: BREAST CANCER
     Route: 048
  7. TAXOL [Concomitant]
  8. CARBOPLATIN [Concomitant]
  9. KYTRIL [Concomitant]
     Dosage: 1 TAB, BID
     Route: 048
  10. AVELOX [Concomitant]
     Dosage: 400 MG, QD
     Route: 048
  11. LYRICA [Concomitant]
  12. CEPHALEXIN [Concomitant]
  13. METRONIDAZOLE [Concomitant]
     Dosage: 500 MG, UNK
  14. AROMASIN [Concomitant]
  15. MEGESTROL ACETATE [Concomitant]
  16. PREDNISONE [Concomitant]
  17. ULTRAM [Concomitant]
  18. OXYCODONE [Concomitant]
  19. TRAMADOL [Concomitant]
  20. RANITIDINE [Concomitant]
  21. ZITHROMAX ^HEINRICH MACK^ [Concomitant]
  22. LEVAQUIN [Concomitant]
  23. NEXIUM [Concomitant]
  24. DEXAMETHASONE [Concomitant]
  25. CIMETIDINE [Concomitant]
  26. COMPAZINE [Concomitant]
  27. PANCREATIN [Concomitant]
  28. VISTARIL [Concomitant]
  29. OXYCONTIN [Concomitant]
  30. COLACE [Concomitant]
  31. ZANTAC [Concomitant]
  32. VITAMIN E [Concomitant]
  33. VITAMIN B [Concomitant]
  34. VITAMIN C [Concomitant]
  35. GLUTAMINE [Concomitant]
  36. MELATONIN [Concomitant]
  37. DIGESTIVE ENZYMES [Concomitant]
  38. ARTEMISININ [Concomitant]
  39. PENICILLIN [Concomitant]
  40. PRILOSEC [Concomitant]
  41. CALCIUM [Concomitant]
  42. LOVENOX [Concomitant]

REACTIONS (81)
  - Blindness unilateral [Unknown]
  - Osteonecrosis of jaw [Recovering/Resolving]
  - Bone loss [Unknown]
  - Loose tooth [Unknown]
  - Dysgeusia [Unknown]
  - Sensitivity of teeth [Unknown]
  - Swelling [Unknown]
  - Pain in jaw [Unknown]
  - Alveolar osteitis [Unknown]
  - Pain [Unknown]
  - Anxiety [Unknown]
  - Anhedonia [Unknown]
  - Gingivitis [Unknown]
  - Gingival pain [Unknown]
  - Periodontal disease [Unknown]
  - Bone disorder [Unknown]
  - Impaired healing [Unknown]
  - Vena cava injury [Unknown]
  - Medical device complication [Unknown]
  - Dementia [Unknown]
  - Amnesia [Unknown]
  - Hypercalcaemia [Unknown]
  - Disease progression [Unknown]
  - Metastases to eye [Unknown]
  - Metastases to liver [Unknown]
  - Metastases to stomach [Unknown]
  - Abdominal pain [Unknown]
  - Abdominal pain upper [Unknown]
  - Nausea [Unknown]
  - Vomiting [Unknown]
  - Osteoarthritis [Unknown]
  - Lung cancer metastatic [Unknown]
  - Atelectasis [Unknown]
  - Osteolysis [Unknown]
  - Compression fracture [Unknown]
  - Pneumothorax [Unknown]
  - Hilar lymphadenopathy [Unknown]
  - Facial bones fracture [Unknown]
  - Acquired diaphragmatic eventration [Unknown]
  - Cyst [Unknown]
  - Fall [Unknown]
  - Sinus disorder [Unknown]
  - Depression [Unknown]
  - Haemoglobin decreased [Unknown]
  - Dyspnoea [Unknown]
  - Fatigue [Unknown]
  - Asthenia [Unknown]
  - Wheelchair user [Unknown]
  - Arthralgia [Unknown]
  - Pain in extremity [Unknown]
  - Pleural effusion [Unknown]
  - Joint crepitation [Unknown]
  - Perivascular dermatitis [Unknown]
  - Dermatitis atopic [Unknown]
  - Arthritis [Unknown]
  - Back pain [Unknown]
  - Neck pain [Unknown]
  - Headache [Unknown]
  - Hypoaesthesia [Unknown]
  - Sleep disorder [Unknown]
  - Balance disorder [Unknown]
  - Haemorrhoids [Unknown]
  - Metastases to bone [Unknown]
  - Lung disorder [Unknown]
  - Splenic lesion [Unknown]
  - Gastric disorder [Unknown]
  - Gastritis [Unknown]
  - Dyspepsia [Unknown]
  - Skin ulcer [Unknown]
  - Metastases to central nervous system [Unknown]
  - Constipation [Unknown]
  - Dental caries [Unknown]
  - Pulpitis dental [Recovered/Resolved]
  - Tooth socket haemorrhage [Recovered/Resolved]
  - Hepatomegaly [Unknown]
  - Nodule [Unknown]
  - Rib fracture [Unknown]
  - Gastric ulcer [Unknown]
  - Hypercholesterolaemia [Unknown]
  - Cataract nuclear [Unknown]
  - Metastases to spine [Unknown]
